FAERS Safety Report 16543577 (Version 1)
Quarter: 2019Q3

REPORT INFORMATION
  Report Type: Spontaneous
  Country: US (occurrence: US)
  Receive Date: 20190709
  Receipt Date: 20190709
  Transmission Date: 20191004
  Serious: No
  Sender: FDA-Public Use
  Company Number: US-009507513-1907USA003360

PATIENT
  Sex: Female
  Weight: 72.5 kg

DRUGS (1)
  1. SINGULAIR [Suspect]
     Active Substance: MONTELUKAST SODIUM
     Indication: HYPERSENSITIVITY
     Dosage: 10 MILLIGRAM, QD
     Dates: start: 2006

REACTIONS (2)
  - Pleural effusion [Unknown]
  - Cough [Unknown]
